FAERS Safety Report 12921126 (Version 2)
Quarter: 2016Q4

REPORT INFORMATION
  Report Type: Report from Study
  Country: JP (occurrence: JP)
  Receive Date: 20161107
  Receipt Date: 20161111
  Transmission Date: 20170207
  Serious: Yes (Other)
  Sender: FDA-Public Use
  Company Number: JP-PFIZER INC-2015393444

PATIENT
  Age: 44 Year
  Sex: Female
  Weight: 67 kg

DRUGS (5)
  1. SIROLIMUS. [Suspect]
     Active Substance: SIROLIMUS
     Indication: LYMPHANGIOLEIOMYOMATOSIS
     Dosage: 1 MG, DAILY
     Route: 048
     Dates: start: 20150824, end: 20150831
  2. SIROLIMUS. [Suspect]
     Active Substance: SIROLIMUS
     Dosage: 2 MG, DAILY
     Route: 048
     Dates: start: 20160201, end: 2016
  3. SIROLIMUS. [Suspect]
     Active Substance: SIROLIMUS
     Dosage: 2 MG, DAILY
     Route: 048
     Dates: start: 20150831, end: 20150914
  4. THEO-DUR [Concomitant]
     Active Substance: THEOPHYLLINE ANHYDROUS
     Indication: PALLIATIVE CARE
     Dosage: 100 MG, 2X/DAY
     Route: 065
     Dates: start: 20141215, end: 20150913
  5. SIROLIMUS. [Suspect]
     Active Substance: SIROLIMUS
     Dosage: 1 MG, DAILY
     Route: 048
     Dates: start: 20151026, end: 20160201

REACTIONS (3)
  - Hepatic function abnormal [Recovered/Resolved]
  - White blood cell count increased [Not Recovered/Not Resolved]
  - Haemoglobinaemia [Recovering/Resolving]

NARRATIVE: CASE EVENT DATE: 20150914
